FAERS Safety Report 4878834-9 (Version None)
Quarter: 2006Q1

REPORT INFORMATION
  Report Type: 
  Country: None (occurrence: None)
  Receive Date: 20060112
  Receipt Date: 20060107
  Transmission Date: 20060701
  Serious: Yes (Other)
  Sender: FDA-Public Use
  Company Number: BR-GLAXOSMITHKLINE-A0588829A

PATIENT
  Age: 21 Year
  Sex: Female

DRUGS (1)
  1. AMOXIL [Suspect]
     Indication: SUICIDE ATTEMPT
     Dosage: 10000MG SINGLE DOSE
     Route: 048
     Dates: start: 20060107, end: 20060107

REACTIONS (2)
  - INTENTIONAL OVERDOSE [None]
  - SUICIDE ATTEMPT [None]
